FAERS Safety Report 10413873 (Version 1)
Quarter: 2014Q3

REPORT INFORMATION
  Report Type: Spontaneous
  Country: MX (occurrence: MX)
  Receive Date: 20140827
  Receipt Date: 20140827
  Transmission Date: 20150326
  Serious: Yes (Other)
  Sender: FDA-Public Use
  Company Number: MX-WATSON-2014-18391

PATIENT
  Age: 13 Year
  Sex: Male
  Weight: 89 kg

DRUGS (7)
  1. PROPOFOL. [Concomitant]
     Active Substance: PROPOFOL
     Indication: INDUCTION OF ANAESTHESIA
     Dosage: 140 MG, SINGLE
     Route: 065
     Dates: start: 20120121
  2. LAMOTRIGINE. [Concomitant]
     Active Substance: LAMOTRIGINE
     Indication: CONVULSION
     Dosage: UNK
     Route: 065
  3. SUFENTANIL [Concomitant]
     Active Substance: SUFENTANIL
     Indication: INDUCTION OF ANAESTHESIA
     Dosage: 25 MG, SINGLE
     Route: 065
     Dates: start: 20120121
  4. XYLOCAINE [Concomitant]
     Active Substance: LIDOCAINE HYDROCHLORIDE
     Indication: INDUCTION OF ANAESTHESIA
     Dosage: 100 MG, SINGLE
     Route: 065
     Dates: start: 20120121
  5. VALPROIC ACID. [Concomitant]
     Active Substance: VALPROIC ACID
     Indication: CONVULSION
     Dosage: UNK
     Route: 065
  6. ATRACURIUM (UNKNOWN) [Suspect]
     Active Substance: ATRACURIUM
     Indication: INDUCTION OF ANAESTHESIA
     Dosage: 45 MG, SINGLE
     Route: 065
     Dates: start: 20120121
  7. MIDAZOLAM [Concomitant]
     Active Substance: MIDAZOLAM\MIDAZOLAM HYDROCHLORIDE
     Indication: ANAESTHETIC PREMEDICATION
     Dosage: 3 MG, SINGLE
     Route: 042
     Dates: start: 20120121

REACTIONS (2)
  - Injection site erythema [Recovered/Resolved]
  - Anaphylactic reaction [Recovered/Resolved]

NARRATIVE: CASE EVENT DATE: 20120121
